FAERS Safety Report 10049478 (Version 3)
Quarter: 2014Q2

REPORT INFORMATION
  Report Type: Spontaneous
  Country: US (occurrence: US)
  Receive Date: 20140401
  Receipt Date: 20140420
  Transmission Date: 20141212
  Serious: No
  Sender: FDA-Public Use
  Company Number: US-009507513-1403USA011802

PATIENT
  Age: 51 Year
  Sex: Female

DRUGS (1)
  1. IMPLANON [Suspect]
     Indication: CONTRACEPTION
     Dosage: 68 MG/ONE ROD UNK
     Dates: start: 20110831

REACTIONS (3)
  - Device difficult to use [Unknown]
  - No adverse event [Unknown]
  - Menopause [Unknown]
